FAERS Safety Report 20840037 (Version 1)
Quarter: 2022Q2

REPORT INFORMATION
  Report Type: Spontaneous
  Country: US (occurrence: None)
  Receive Date: 20220516
  Receipt Date: 20220516
  Transmission Date: 20220720
  Serious: Yes (Hospitalization)
  Sender: FDA-Public Use
  Company Number: None

PATIENT
  Sex: Female

DRUGS (3)
  1. HUMIRA [Suspect]
     Active Substance: ADALIMUMAB
     Dosage: OTHER QUANTITY : 40 MG/0.4ML;?FREQUENCY :EVERY TWO WEEKS
     Route: 058
     Dates: start: 20220203
  2. UV STARTER [Concomitant]
  3. OTEZLA [Concomitant]
     Active Substance: APREMILAST

REACTIONS (1)
  - Surgery [None]
